FAERS Safety Report 6778828-2 (Version None)
Quarter: 2010Q2

REPORT INFORMATION
  Report Type: 
  Country: None (occurrence: None)
  Receive Date: 20100618
  Receipt Date: 20100609
  Transmission Date: 20101027
  Serious: Yes (Hospitalization)
  Sender: FDA-Public Use
  Company Number: GB-TEVA-237085ISR

PATIENT
  Age: 60 Year
  Sex: Male

DRUGS (2)
  1. SIMVASTATIN [Suspect]
  2. ATORVASTATIN [Suspect]
     Indication: BRAIN STEM STROKE

REACTIONS (1)
  - MYASTHENIA GRAVIS [None]
